FAERS Safety Report 18012553 (Version 1)
Quarter: 2020Q3

REPORT INFORMATION
  Report Type: Spontaneous
  Country: US (occurrence: US)
  Receive Date: 20200710
  Receipt Date: 20200710
  Transmission Date: 20201103
  Serious: No
  Sender: FDA-Public Use
  Company Number: None

PATIENT

DRUGS (1)
  1. STERILE WATER [Suspect]
     Active Substance: WATER

REACTIONS (2)
  - Product packaging confusion [None]
  - Wrong product administered [None]
